FAERS Safety Report 21815972 (Version 1)
Quarter: 2023Q1

REPORT INFORMATION
  Report Type: Spontaneous
  Country: CN (occurrence: CN)
  Receive Date: 20230104
  Receipt Date: 20230104
  Transmission Date: 20230418
  Serious: Yes (Other)
  Sender: FDA-Public Use
  Company Number: CN-ASTELLAS-2022US046188

PATIENT
  Age: 33 Year
  Sex: Male

DRUGS (1)
  1. ISAVUCONAZOLE [Suspect]
     Active Substance: ISAVUCONAZOLE
     Indication: Bronchopulmonary aspergillosis
     Dosage: 200 MG, ONCE DAILY (THROUGH TUBE FEEDING)
     Route: 065
     Dates: start: 20220611, end: 20220614

REACTIONS (2)
  - Liver injury [Recovering/Resolving]
  - Wrong technique in product usage process [Unknown]

NARRATIVE: CASE EVENT DATE: 20220611
